FAERS Safety Report 10580002 (Version 1)
Quarter: 2014Q4

REPORT INFORMATION
  Report Type: Spontaneous
  Country: CA (occurrence: CA)
  Receive Date: 20141112
  Receipt Date: 20141112
  Transmission Date: 20150529
  Serious: Yes (Hospitalization, Other)
  Sender: FDA-Public Use
  Company Number: CA-ACTAVIS-2014-23980

PATIENT
  Age: 55 Year
  Sex: Female

DRUGS (5)
  1. CEFTRIAXONE (UNKNOWN) [Suspect]
     Active Substance: CEFTRIAXONE
     Indication: MENINGITIS BACTERIAL
     Dosage: UNK
     Route: 065
  2. CIPROFLOXACIN. [Concomitant]
     Active Substance: CIPROFLOXACIN
     Indication: MENINGITIS BACTERIAL
     Dosage: UNK
     Route: 065
  3. MEROPENEM (UNKNOWN) [Suspect]
     Active Substance: MEROPENEM
     Indication: MENINGITIS BACTERIAL
     Dosage: UNK
     Route: 065
  4. CEFTAZIDIME (UNKNOWN) [Suspect]
     Active Substance: CEFTAZIDIME
     Indication: MENINGITIS BACTERIAL
     Dosage: UNK
     Route: 065
  5. VANCOMYCIN (UNKNOWN) [Suspect]
     Active Substance: VANCOMYCIN
     Indication: MENINGITIS BACTERIAL
     Dosage: UNK
     Route: 065

REACTIONS (2)
  - Drug reaction with eosinophilia and systemic symptoms [Recovered/Resolved]
  - Drug hypersensitivity [Unknown]
